FAERS Safety Report 23257403 (Version 1)
Quarter: 2023Q4

REPORT INFORMATION
  Report Type: Spontaneous
  Country: US (occurrence: US)
  Receive Date: 20231204
  Receipt Date: 20231204
  Transmission Date: 20240110
  Serious: Yes (Hospitalization)
  Sender: FDA-Public Use
  Company Number: US-STRIDES ARCOLAB LIMITED-2023SP017105

PATIENT
  Age: 6 Year
  Sex: Female

DRUGS (12)
  1. ATOMOXETINE [Suspect]
     Active Substance: ATOMOXETINE
     Indication: Attention deficit hyperactivity disorder
     Dosage: UNK
     Route: 065
  2. ATOMOXETINE [Suspect]
     Active Substance: ATOMOXETINE
     Dosage: UNK; (DOSE WAS INCREASED)
     Route: 065
  3. RITALIN [Concomitant]
     Active Substance: METHYLPHENIDATE HYDROCHLORIDE
     Indication: Attention deficit hyperactivity disorder
     Dosage: 12.5 MILLIGRAM; IMMEDIATE RELEASE TOTAL DOSE OF 12.5MG
     Route: 065
     Dates: start: 202009
  4. RITALIN [Concomitant]
     Active Substance: METHYLPHENIDATE HYDROCHLORIDE
     Dosage: 5 MILLIGRAM; VERY LOW DOSE OF ONLY 5MG-TEST DOSE
     Route: 065
  5. RITALIN [Concomitant]
     Active Substance: METHYLPHENIDATE HYDROCHLORIDE
     Dosage: 20 MILLIGRAM; METHYLPHENIDATE (JORNAY PM) EXTENDED RELEASE 20MG
     Route: 065
  6. FOCALIN [Concomitant]
     Active Substance: DEXMETHYLPHENIDATE HYDROCHLORIDE
     Indication: Attention deficit hyperactivity disorder
     Dosage: 10 MILLIGRAM; EXTENDED RELEASE
     Route: 065
     Dates: start: 2022
  7. FOCALIN [Concomitant]
     Active Substance: DEXMETHYLPHENIDATE HYDROCHLORIDE
     Dosage: 20 MILLIGRAM; EXTENDED RELEASE
     Route: 065
     Dates: start: 2022
  8. METHYLPREDNISOLONE [Concomitant]
     Active Substance: METHYLPREDNISOLONE
     Indication: Encephalitis autoimmune
     Dosage: 500 MILLIGRAM
     Route: 042
  9. VYVANSE [Concomitant]
     Active Substance: LISDEXAMFETAMINE DIMESYLATE
     Indication: Attention deficit hyperactivity disorder
     Dosage: 20 MILLIGRAM
     Route: 065
  10. CLONIDINE [Concomitant]
     Active Substance: CLONIDINE
     Indication: Product used for unknown indication
     Dosage: 0.1 MILLIGRAM
     Route: 065
     Dates: start: 202009
  11. Immunoglobulin [Concomitant]
     Indication: Encephalitis autoimmune
     Dosage: UNK
     Route: 042
  12. Immunoglobulin [Concomitant]
     Dosage: UNK; TWO ROUNDS OF IMMUNE GLOBULIN
     Route: 065

REACTIONS (1)
  - Drug ineffective [Unknown]
